FAERS Safety Report 15571417 (Version 3)
Quarter: 2019Q3

REPORT INFORMATION
  Report Type: Report from Study
  Country: CA (occurrence: CA)
  Receive Date: 20181031
  Receipt Date: 20190731
  Transmission Date: 20191004
  Serious: Yes (Hospitalization, Other)
  Sender: FDA-Public Use
  Company Number: CA-TEVA-2018-CA-968314

PATIENT
  Sex: Female

DRUGS (5)
  1. CLOPIDOGREL [Suspect]
     Active Substance: CLOPIDOGREL BISULFATE
     Route: 065
  2. COPAXONE [Suspect]
     Active Substance: GLATIRAMER ACETATE
     Indication: MULTIPLE SCLEROSIS
     Dosage: 20 MILLIGRAM DAILY;
     Route: 058
     Dates: start: 20001102, end: 201808
  3. ZOLOFT [Concomitant]
     Active Substance: SERTRALINE HYDROCHLORIDE
  4. ACETYLSALICYLIC ACID [Suspect]
     Active Substance: ASPIRIN
     Route: 065
  5. ZOPICLONE [Concomitant]
     Active Substance: ZOPICLONE

REACTIONS (12)
  - Coronary artery stenosis [Unknown]
  - Immediate post-injection reaction [Unknown]
  - Feeling abnormal [Unknown]
  - Contusion [Unknown]
  - Injection site mass [Unknown]
  - Flushing [Unknown]
  - Epistaxis [Unknown]
  - Myocardial infarction [Unknown]
  - Hypertension [Unknown]
  - Headache [Unknown]
  - Muscle tightness [Unknown]
  - Arteriospasm coronary [Unknown]
